FAERS Safety Report 7603968-5 (Version None)
Quarter: 2011Q3

REPORT INFORMATION
  Report Type: 
  Country: None (occurrence: None)
  Receive Date: 20110711
  Receipt Date: 20110711
  Transmission Date: 20111222
  Serious: Yes (Hospitalization)
  Sender: FDA-Public Use
  Company Number: None

PATIENT
  Sex: Male
  Weight: 100 kg

DRUGS (1)
  1. SIMVASTATIN [Suspect]
     Indication: HYPERLIPIDAEMIA
     Dosage: 80 MG  1 TAB QHS PO
     Route: 048
     Dates: start: 20101202, end: 20110628

REACTIONS (11)
  - PYREXIA [None]
  - ASTHENIA [None]
  - ABDOMINAL PAIN [None]
  - OEDEMA PERIPHERAL [None]
  - RHABDOMYOLYSIS [None]
  - MUCOSAL DRYNESS [None]
  - FATIGUE [None]
  - MALAISE [None]
  - BLOOD CREATINE INCREASED [None]
  - MUCOUS MEMBRANE DISORDER [None]
  - OLIGURIA [None]
